FAERS Safety Report 13697183 (Version 1)
Quarter: 2017Q2

REPORT INFORMATION
  Report Type: Spontaneous
  Country: GB (occurrence: GB)
  Receive Date: 20170628
  Receipt Date: 20170628
  Transmission Date: 20170830
  Serious: Yes (Disabling, Other)
  Sender: FDA-Public Use
  Company Number: GB-TEVA-779418ACC

PATIENT
  Age: 67 Year
  Sex: Female
  Weight: 79.37 kg

DRUGS (2)
  1. COCODAMOL [Suspect]
     Active Substance: ACETAMINOPHEN\CODEINE PHOSPHATE
     Indication: ORAL PAIN
     Route: 048
     Dates: start: 20170527, end: 20170531
  2. EFFEXOR [Concomitant]
     Active Substance: VENLAFAXINE HYDROCHLORIDE

REACTIONS (4)
  - Dysuria [Unknown]
  - Faecaloma [Recovering/Resolving]
  - Anorectal discomfort [Unknown]
  - Bladder discomfort [Unknown]

NARRATIVE: CASE EVENT DATE: 201705
